FAERS Safety Report 17632827 (Version 1)
Quarter: 2020Q2

REPORT INFORMATION
  Report Type: Spontaneous
  Country: US (occurrence: US)
  Receive Date: 20200406
  Receipt Date: 20200406
  Transmission Date: 20200713
  Serious: No
  Sender: FDA-Public Use
  Company Number: US-SA-2020SA085197

PATIENT
  Age: 68 Year
  Sex: Female

DRUGS (2)
  1. NASACORT ALLERGY 24HR [Suspect]
     Active Substance: TRIAMCINOLONE ACETONIDE
     Indication: NASAL CONGESTION
  2. NASACORT ALLERGY 24HR [Suspect]
     Active Substance: TRIAMCINOLONE ACETONIDE
     Indication: EAR CONGESTION
     Dosage: UNK

REACTIONS (5)
  - Ear congestion [Unknown]
  - Headache [Unknown]
  - Incorrect dose administered by product [Unknown]
  - Nasal congestion [Unknown]
  - Therapeutic response decreased [Unknown]
